FAERS Safety Report 6406319-7 (Version None)
Quarter: 2009Q4

REPORT INFORMATION
  Report Type: 
  Country: None (occurrence: None)
  Receive Date: 20091019
  Receipt Date: 20091005
  Transmission Date: 20100525
  Serious: Yes (Hospitalization)
  Sender: FDA-Public Use
  Company Number: US-MYLANLABS-2009S1017362

PATIENT
  Age: 67 Year
  Sex: Female

DRUGS (1)
  1. AMIODARONE [Suspect]
     Indication: DRUG USE FOR UNKNOWN INDICATION
     Dosage: LOW DOSE

REACTIONS (2)
  - ASCITES [None]
  - HEPATIC CIRRHOSIS [None]
